FAERS Safety Report 5514212-7 (Version None)
Quarter: 2007Q4

REPORT INFORMATION
  Report Type: 
  Country: None (occurrence: None)
  Receive Date: 20071031
  Receipt Date: 20070810
  Transmission Date: 20080405
  Serious: Yes (Other)
  Sender: FDA-Public Use
  Company Number: US021094

PATIENT
  Age: 32 Year
  Sex: Male

DRUGS (1)
  1. PROVIGIL [Suspect]
     Dosage: 200 MG QD ORAL
     Route: 048
     Dates: start: 20070701, end: 20070701

REACTIONS (1)
  - PALPITATIONS [None]
